FAERS Safety Report 13681723 (Version 1)
Quarter: 2017Q2

REPORT INFORMATION
  Report Type: Spontaneous
  Country: US (occurrence: US)
  Receive Date: 20170622
  Receipt Date: 20170622
  Transmission Date: 20170830
  Serious: Yes (Life-Threatening)
  Sender: FDA-Public Use
  Company Number: None

PATIENT
  Age: 61 Year
  Sex: Female
  Weight: 59.4 kg

DRUGS (4)
  1. LEVOTHYROXINE. [Concomitant]
     Active Substance: LEVOTHYROXINE
  2. ALPRAZOLAM. [Concomitant]
     Active Substance: ALPRAZOLAM
  3. METHYLPHENIDATE. [Concomitant]
     Active Substance: METHYLPHENIDATE
  4. AZITHROMYCIN ANHYDROUS. [Suspect]
     Active Substance: AZITHROMYCIN ANHYDROUS
     Indication: PRODUCT USED FOR UNKNOWN INDICATION
     Route: 048

REACTIONS (12)
  - Musculoskeletal pain [None]
  - Hyperhidrosis [None]
  - Cholelithiasis [None]
  - Abdominal pain upper [None]
  - Feeling abnormal [None]
  - Pruritus generalised [None]
  - Tinnitus [None]
  - Headache [None]
  - Intestinal obstruction [None]
  - Dyspnoea [None]
  - Renal pain [None]
  - Pancreatitis acute [None]

NARRATIVE: CASE EVENT DATE: 20160423
